FAERS Safety Report 9459220 (Version 1)
Quarter: 2013Q3

REPORT INFORMATION
  Report Type: Report from Study
  Country: US (occurrence: US)
  Receive Date: 20130814
  Receipt Date: 20130814
  Transmission Date: 20140515
  Serious: Yes (Hospitalization)
  Sender: FDA-Public Use
  Company Number: US-B.I. PHARMACEUTICALS,INC./RIDGEFIELD-2013-BI-24686GD

PATIENT
  Age: 65 Year
  Sex: Female

DRUGS (10)
  1. PRADAXA [Suspect]
     Route: 048
  2. MULTAQ [Suspect]
  3. NEBIVOLOL HYDROCHLORIDE [Concomitant]
  4. FLUTICASONE PROPIONATE [Concomitant]
  5. ESTRADIOL [Concomitant]
  6. KLONOPIN [Concomitant]
  7. PEPCID [Concomitant]
  8. CYMBALTA [Concomitant]
  9. OXYBUTYNIN [Concomitant]
  10. MECLIZINE [Concomitant]

REACTIONS (2)
  - Rectal haemorrhage [Unknown]
  - Drug interaction [Unknown]
